FAERS Safety Report 10396558 (Version 3)
Quarter: 2015Q2

REPORT INFORMATION
  Report Type: Spontaneous
  Country: US (occurrence: None)
  Receive Date: 20130815
  Receipt Date: 20150408
  Transmission Date: 20150821
  Serious: Yes (Other)
  Sender: FDA-Public Use
  Company Number: ADR-2013-00706

PATIENT
  Age: 52 Year
  Sex: Male

DRUGS (1)
  1. LIORESAL [Suspect]
     Active Substance: BACLOFEN
     Indication: MUSCLE SPASTICITY
     Dosage: 509 MCG/DAY; SEE B5?

REACTIONS (12)
  - Device occlusion [None]
  - Cerebrospinal fluid leakage [None]
  - Muscle spasticity [None]
  - No therapeutic response [None]
  - Device damage [None]
  - Haemorrhage [None]
  - Pain [None]
  - Implant site scar [None]
  - Tinnitus [None]
  - Muscle tightness [None]
  - Drug withdrawal syndrome [None]
  - Device connection issue [None]

NARRATIVE: CASE EVENT DATE: 20130418
